FAERS Safety Report 24167728 (Version 1)
Quarter: 2024Q3

REPORT INFORMATION
  Report Type: Spontaneous
  Country: CN (occurrence: None)
  Receive Date: 20240802
  Receipt Date: 20240802
  Transmission Date: 20241016
  Serious: Yes (Death)
  Sender: ASTRAZENECA
  Company Number: 2024A174267

PATIENT
  Sex: Male

DRUGS (1)
  1. IMFINZI [Suspect]
     Active Substance: DURVALUMAB

REACTIONS (1)
  - Death [Fatal]
